FAERS Safety Report 9858404 (Version 1)
Quarter: 2014Q1

REPORT INFORMATION
  Report Type: Spontaneous
  Country: US (occurrence: None)
  Receive Date: 20140130
  Receipt Date: 20140130
  Transmission Date: 20141002
  Serious: Yes (Hospitalization)
  Sender: FDA-Public Use
  Company Number: None

PATIENT
  Age: 6 Year
  Sex: Female
  Weight: 22.23 kg

DRUGS (1)
  1. TAMIFLU [Suspect]
     Indication: INFLUENZA
     Route: 048
     Dates: start: 20140113, end: 20140116

REACTIONS (6)
  - Headache [None]
  - Panic attack [None]
  - Hallucinations, mixed [None]
  - School refusal [None]
  - Hypophagia [None]
  - Fear [None]
